FAERS Safety Report 18009225 (Version 1)
Quarter: 2020Q3

REPORT INFORMATION
  Report Type: Spontaneous
  Country: US (occurrence: US)
  Receive Date: 20200710
  Receipt Date: 20200710
  Transmission Date: 20201103
  Serious: Yes (Hospitalization, Other)
  Sender: FDA-Public Use
  Company Number: US-PURDUE-USA-2020-0155343

PATIENT
  Sex: Male

DRUGS (12)
  1. OXYCONTIN [Suspect]
     Active Substance: OXYCODONE HYDROCHLORIDE
     Indication: BACK INJURY
     Dosage: 40 MG, Q12H
     Route: 048
  2. ULTRAM [Suspect]
     Active Substance: TRAMADOL HYDROCHLORIDE
     Indication: PAIN
     Dosage: UNK
     Route: 065
     Dates: start: 2003, end: 20030812
  3. MS CONTIN [Suspect]
     Active Substance: MORPHINE SULFATE
     Indication: BACK INJURY
  4. OXYCONTIN [Suspect]
     Active Substance: OXYCODONE HYDROCHLORIDE
     Indication: PAIN
     Dosage: 20 MG, Q12H
     Route: 048
  5. STEROID ANTIBACTERIALS [Suspect]
     Active Substance: UNSPECIFIED INGREDIENT
     Indication: BACK INJURY
     Dosage: UNK
     Route: 008
  6. MS CONTIN [Suspect]
     Active Substance: MORPHINE SULFATE
     Indication: PAIN
     Dosage: UNK
     Route: 048
  7. SEROQUEL [Suspect]
     Active Substance: QUETIAPINE FUMARATE
     Indication: PRODUCT USED FOR UNKNOWN INDICATION
     Dosage: UNK
     Route: 065
  8. LIDODERM [Suspect]
     Active Substance: LIDOCAINE
     Indication: PAIN
     Dosage: 1 DF, QD PRN
     Route: 062
  9. PHRENILIN [Suspect]
     Active Substance: ACETAMINOPHEN\BUTALBITAL
     Indication: PAIN
     Dosage: UNK
     Route: 048
     Dates: start: 2003, end: 20030812
  10. CLONAZEPAM. [Suspect]
     Active Substance: CLONAZEPAM
     Indication: PRODUCT USED FOR UNKNOWN INDICATION
     Dosage: UNK
     Route: 065
  11. PERCOCET                           /00446701/ [Suspect]
     Active Substance: ACETAMINOPHEN\OXYCODONE HYDROCHLORIDE\OXYCODONE TEREPHTHALATE
     Indication: BREAKTHROUGH PAIN
     Dosage: 10 MG, Q8H
     Route: 048
  12. PERCOCET                           /00446701/ [Suspect]
     Active Substance: ACETAMINOPHEN\OXYCODONE HYDROCHLORIDE\OXYCODONE TEREPHTHALATE
     Dosage: 10 MG, BID PRN
     Route: 048

REACTIONS (17)
  - Road traffic accident [Unknown]
  - Muscle strain [Unknown]
  - Muscle spasms [Unknown]
  - Eye pain [Unknown]
  - Hyperlipidaemia [Unknown]
  - Facial bones fracture [Unknown]
  - Overdose [Unknown]
  - Sedation complication [Unknown]
  - Headache [Unknown]
  - Eye pruritus [Unknown]
  - Status epilepticus [Unknown]
  - Withdrawal syndrome [Unknown]
  - Respiratory failure [Unknown]
  - Fall [Unknown]
  - Myofascial pain syndrome [Unknown]
  - Drug dependence [Unknown]
  - Renal failure [Unknown]

NARRATIVE: CASE EVENT DATE: 20030623
